FAERS Safety Report 18373492 (Version 1)
Quarter: 2020Q4

REPORT INFORMATION
  Report Type: Spontaneous
  Country: CA (occurrence: CA)
  Receive Date: 20201012
  Receipt Date: 20201012
  Transmission Date: 20210114
  Serious: Yes (Life-Threatening, Other)
  Sender: FDA-Public Use
  Company Number: CA-PFIZER INC-2020392507

PATIENT
  Age: 7 Year
  Sex: Male
  Weight: 20 kg

DRUGS (12)
  1. ADVAIR HFA [Concomitant]
     Active Substance: FLUTICASONE PROPIONATE\SALMETEROL XINAFOATE
  2. MIDAZOLAM. [Suspect]
     Active Substance: MIDAZOLAM
     Indication: HYPERTONIA
     Dosage: 50 MG
     Route: 042
  3. CEFOTAXIME [Concomitant]
     Active Substance: CEFOTAXIME SODIUM
  4. LORAZEPAM. [Concomitant]
     Active Substance: LORAZEPAM
  5. MELATONIN [Concomitant]
     Active Substance: MELATONIN
  6. SALBUTAMOL [Concomitant]
     Active Substance: ALBUTEROL
  7. KETAMINE [Concomitant]
     Active Substance: KETAMINE
  8. ROCURONIUM [Concomitant]
     Active Substance: ROCURONIUM BROMIDE
  9. FENTANYL. [Concomitant]
     Active Substance: FENTANYL
  10. VITAMIN D [VITAMIN D NOS] [Concomitant]
     Active Substance: VITAMIN D NOS
  11. CALCIUM [Concomitant]
     Active Substance: CALCIUM
  12. MORPHINE [Concomitant]
     Active Substance: MORPHINE

REACTIONS (10)
  - Seizure [Unknown]
  - Crying [Unknown]
  - Hypotonia [Unknown]
  - Respiratory failure [Unknown]
  - Endotracheal intubation [Unknown]
  - Influenza B virus test positive [Unknown]
  - Hypertonia [Unknown]
  - Pyrexia [Unknown]
  - Vomiting [Unknown]
  - Apnoea [Unknown]
